FAERS Safety Report 8591250-1 (Version None)
Quarter: 2012Q3

REPORT INFORMATION
  Report Type: 
  Country: None (occurrence: None)
  Receive Date: 20120813
  Receipt Date: 20120806
  Transmission Date: 20120928
  Serious: Yes (Other)
  Sender: FDA-Public Use
  Company Number: NZ-BRISTOL-MYERS SQUIBB COMPANY-16839029

PATIENT
  Age: 41 Year
  Sex: Male

DRUGS (1)
  1. MESNA [Suspect]
     Indication: CYSTITIS HAEMORRHAGIC

REACTIONS (1)
  - PHOTODERMATOSIS [None]
